FAERS Safety Report 21556015 (Version 1)
Quarter: 2022Q4

REPORT INFORMATION
  Report Type: Spontaneous
  Country: FR (occurrence: FR)
  Receive Date: 20221104
  Receipt Date: 20221104
  Transmission Date: 20230112
  Serious: Yes (Life-Threatening)
  Sender: FDA-Public Use
  Company Number: None

PATIENT
  Age: 47 Year
  Sex: Male
  Weight: 67 kg

DRUGS (5)
  1. FLUDARABINE [Suspect]
     Active Substance: FLUDARABINE PHOSPHATE
     Indication: Chronic myelomonocytic leukaemia
     Dosage: DURATION : 2 DAYS
     Route: 065
     Dates: start: 20211209, end: 20211211
  2. CYCLOPHOSPHAMIDE [Suspect]
     Active Substance: CYCLOPHOSPHAMIDE
     Indication: Chronic myelomonocytic leukaemia
     Dosage: DURATION : 1 DAY
     Route: 065
     Dates: start: 20211216, end: 20211217
  3. CYTARABINE [Suspect]
     Active Substance: CYTARABINE
     Indication: Chronic myelomonocytic leukaemia
     Dosage: DURATION : 2 DAYS
     Route: 065
     Dates: start: 20211209, end: 20211211
  4. AMSACRINE [Suspect]
     Active Substance: AMSACRINE
     Indication: Chronic myelomonocytic leukaemia
     Dosage: DURATION : 2 DAYS
     Route: 065
     Dates: start: 20211209, end: 20211211
  5. BUSULFAN [Suspect]
     Active Substance: BUSULFAN
     Indication: Chronic myelomonocytic leukaemia
     Dosage: DURATION : 1 DAY
     Route: 065
     Dates: start: 20211214, end: 20211215

REACTIONS (2)
  - Cardiac failure [Recovered/Resolved]
  - Bone marrow failure [Recovered/Resolved]

NARRATIVE: CASE EVENT DATE: 20211218
